FAERS Safety Report 4457683-X (Version None)
Quarter: 2004Q3

REPORT INFORMATION
  Report Type: 
  Country: None (occurrence: None)
  Receive Date: 20040831
  Receipt Date: 20040506
  Transmission Date: 20050211
  Serious: No
  Sender: FDA-Public Use
  Company Number: MPS1-10189

PATIENT
  Age: 5 Year
  Sex: Male
  Weight: 14 kg

DRUGS (3)
  1. ALDURAZYME [Suspect]
     Indication: MUCOPOLYSACCHARIDOSIS IH
     Dosage: 0.62 MG/KG QWK IV
     Route: 042
     Dates: start: 20030529
  2. BENADRYL [Concomitant]
  3. TYLENOL (CAPLET) [Concomitant]

REACTIONS (1)
  - URTICARIA [None]
